FAERS Safety Report 4609314-3 (Version None)
Quarter: 2005Q2

REPORT INFORMATION
  Report Type: 
  Country: None (occurrence: None)
  Receive Date: 20050301
  Receipt Date: 20041112
  Transmission Date: 20051028
  Serious: No
  Sender: FDA-Public Use
  Company Number: WAES 0409USA02706

PATIENT
  Sex: Female

DRUGS (6)
  1. ZETIA [Suspect]
     Dosage: 10MG/DAILY/PO
     Route: 048
  2. ACCUPRIL [Concomitant]
  3. LIPITOR [Concomitant]
  4. NORVASC [Concomitant]
  5. TOPROL-XL [Concomitant]
  6. INSULIN [Concomitant]

REACTIONS (1)
  - RASH [None]
